FAERS Safety Report 12606588 (Version 1)
Quarter: 2016Q3

REPORT INFORMATION
  Report Type: Spontaneous
  Country: US (occurrence: None)
  Receive Date: 20160728
  Receipt Date: 20160728
  Transmission Date: 20161109
  Serious: Yes (Life-Threatening, Hospitalization, Disabling, Other)
  Sender: FDA-Public Use
  Company Number: None

PATIENT
  Age: 57 Year
  Sex: Male
  Weight: 142.88 kg

DRUGS (8)
  1. VITAMIN C [Concomitant]
     Active Substance: ASCORBIC ACID
  2. BABY ASPIRIN [Concomitant]
     Active Substance: ASPIRIN
  3. DRUG ELUTING STENT [Concomitant]
     Active Substance: DEVICE
  4. DICLOFENAC [Concomitant]
     Active Substance: DICLOFENAC
  5. DICLOFENAC SODIUM 75 MG P75, 75 MG [Suspect]
     Active Substance: DICLOFENAC SODIUM
     Indication: ARTHRITIS
     Route: 048
     Dates: start: 20160601, end: 20160722
  6. CPAP [Concomitant]
     Active Substance: DEVICE
  7. DICLOFENAC SODIUM 75 MG P75, 75 MG [Suspect]
     Active Substance: DICLOFENAC SODIUM
     Indication: LIGAMENT INJURY
     Route: 048
     Dates: start: 20160601, end: 20160722
  8. VITAMIN D [Concomitant]
     Active Substance: CHOLECALCIFEROL

REACTIONS (1)
  - Myocardial infarction [None]

NARRATIVE: CASE EVENT DATE: 20160722
